FAERS Safety Report 8095067-6 (Version None)
Quarter: 2012Q1

REPORT INFORMATION
  Report Type: 
  Country: None (occurrence: None)
  Receive Date: 20120131
  Receipt Date: 20120124
  Transmission Date: 20120608
  Serious: Yes (Other)
  Sender: FDA-Public Use
  Company Number: NL-SANOFI-AVENTIS-2012SA005126

PATIENT

DRUGS (6)
  1. DRONEDARONE HCL [Suspect]
     Route: 048
  2. ACENOCOUMAROL [Concomitant]
     Route: 048
     Dates: start: 20100609
  3. MICARDIS [Concomitant]
     Route: 048
     Dates: start: 20100609
  4. DIGOXIN [Concomitant]
     Route: 048
     Dates: start: 20100609, end: 20110523
  5. AMIODARONE HCL [Suspect]
     Route: 048
  6. SIMVASTATIN [Concomitant]
     Route: 048
     Dates: start: 20101126

REACTIONS (1)
  - VISUAL IMPAIRMENT [None]
